FAERS Safety Report 5265098-X (Version None)
Quarter: 2007Q1

REPORT INFORMATION
  Report Type: 
  Country: None (occurrence: None)
  Receive Date: 20061122
  Receipt Date: 20061019
  Transmission Date: 20070707
  Serious: Yes (Other)
  Sender: FDA-Public Use
  Company Number: US-JNJFOC-20061004462

PATIENT
  Age: 46 Year
  Sex: Male
  Weight: 90.7194 kg

DRUGS (6)
  1. RISPERDAL CONSTA [Suspect]
     Indication: SCHIZOPHRENIA
     Dosage: 50 MG, 1 IN 2 WEEK; INJECTION, 25 MG, 1 IN 2 WEEK, INJECTION
     Route: 030
     Dates: start: 20060801, end: 20061001
  2. RISPERDAL CONSTA [Suspect]
     Indication: SCHIZOPHRENIA
     Dosage: 50 MG, 1 IN 2 WEEK; INJECTION, 25 MG, 1 IN 2 WEEK, INJECTION
     Route: 030
     Dates: start: 20061001
  3. COGENTIN [Concomitant]
  4. ABILIFY [Concomitant]
  5. ZOLOFT [Concomitant]
  6. BENZAPINE (ALL OTHER THERAPEUTIC PRODUCTS) TABLETS [Concomitant]

REACTIONS (3)
  - FEELING ABNORMAL [None]
  - INSOMNIA [None]
  - WEIGHT INCREASED [None]
